FAERS Safety Report 4277470-5 (Version None)
Quarter: 2004Q1

REPORT INFORMATION
  Report Type: 
  Country: None (occurrence: None)
  Receive Date: 20040122
  Receipt Date: 20031031
  Transmission Date: 20041129
  Serious: Yes (Hospitalization)
  Sender: FDA-Public Use
  Company Number: WAES 0311USA00034

PATIENT
  Age: 63 Year
  Sex: Female
  Weight: 134 kg

DRUGS (11)
  1. LORTAB [Concomitant]
     Indication: PAIN MANAGEMENT
     Route: 048
     Dates: start: 20031021, end: 20031025
  2. LORTAB [Concomitant]
     Indication: POST PROCEDURAL PAIN
     Route: 048
     Dates: start: 20031021, end: 20031025
  3. NORVASC [Concomitant]
     Indication: HYPERTENSION
     Route: 048
     Dates: start: 20020101
  4. PREMARIN [Concomitant]
     Route: 048
     Dates: start: 19880101, end: 20031027
  5. HYZAAR [Concomitant]
     Indication: HYPERTENSION
     Route: 048
     Dates: start: 20020101
  6. PREVACID [Concomitant]
  7. PRILOSEC [Concomitant]
     Indication: GASTROOESOPHAGEAL REFLUX DISEASE
     Route: 048
     Dates: start: 20000101
  8. VIOXX [Suspect]
     Indication: PAIN MANAGEMENT
     Route: 048
     Dates: start: 20031021, end: 20031024
  9. VIOXX [Suspect]
     Indication: POST PROCEDURAL PAIN
     Route: 048
     Dates: start: 20031021, end: 20031024
  10. BEXTRA [Concomitant]
     Indication: ARTHRALGIA
     Route: 048
     Dates: start: 20031001, end: 20031017
  11. BEXTRA [Concomitant]
     Indication: OSTEOARTHRITIS
     Route: 048
     Dates: start: 20031001, end: 20031017

REACTIONS (1)
  - DEEP VEIN THROMBOSIS [None]
